FAERS Safety Report 22254634 (Version 1)
Quarter: 2023Q2

REPORT INFORMATION
  Report Type: Spontaneous
  Country: US (occurrence: None)
  Receive Date: 20230424
  Receipt Date: 20230424
  Transmission Date: 20230721
  Serious: No
  Sender: FDA-Public Use
  Company Number: None

PATIENT
  Age: 73 Year
  Sex: Male

DRUGS (2)
  1. PROMACTA [Suspect]
     Active Substance: ELTROMBOPAG OLAMINE
     Indication: Myelodysplastic syndrome
     Dosage: FREQUENCY : DAILY;?
     Route: 048
     Dates: start: 20230331
  2. CYCLOSPORINE [Suspect]
     Active Substance: CYCLOSPORINE

REACTIONS (4)
  - Drug eruption [None]
  - Vasculitis [None]
  - Therapy interrupted [None]
  - Erythema [None]

NARRATIVE: CASE EVENT DATE: 20230420
